FAERS Safety Report 15466898 (Version 1)
Quarter: 2018Q4

REPORT INFORMATION
  Report Type: Spontaneous
  Country: IT (occurrence: IT)
  Receive Date: 20181005
  Receipt Date: 20181005
  Transmission Date: 20190204
  Serious: Yes (Life-Threatening)
  Sender: FDA-Public Use
  Company Number: IT-SUN PHARMACEUTICAL INDUSTRIES LTD-2018RR-186212

PATIENT
  Age: 67 Year
  Sex: Female

DRUGS (8)
  1. TAD [Concomitant]
     Indication: ADENOCARCINOMA OF COLON
     Route: 042
     Dates: start: 20080122, end: 20080428
  2. EUTIROX [Concomitant]
     Active Substance: LEVOTHYROXINE SODIUM
     Indication: ADENOCARCINOMA OF COLON
     Route: 048
     Dates: start: 20080122, end: 20080428
  3. FLUOROURACILE TEVA [Concomitant]
     Active Substance: FLUOROURACIL
     Indication: ADENOCARCINOMA OF COLON
     Dosage: 552 MG, UNK
     Route: 040
     Dates: start: 20080122, end: 20080428
  4. NAVOBAN [Concomitant]
     Active Substance: TROPISETRON HYDROCHLORIDE
     Indication: ADENOCARCINOMA OF COLON
     Route: 042
     Dates: start: 20080122, end: 20080428
  5. CALCIO LEVOFOLINATO TEVA [Concomitant]
     Active Substance: LEVOLEUCOVORIN CALCIUM
     Indication: ADENOCARCINOMA OF COLON
     Route: 042
     Dates: start: 20080122, end: 20080428
  6. ELOXATIN [Suspect]
     Active Substance: OXALIPLATIN
     Indication: ADENOCARCINOMA OF COLON
     Dosage: CYCLICAL
     Route: 042
     Dates: start: 20080122, end: 20080428
  7. OXALIPLATIN. [Suspect]
     Active Substance: OXALIPLATIN
     Indication: PRODUCT USED FOR UNKNOWN INDICATION
     Dosage: ()
     Route: 065
  8. FLUOROURACILE TEVA [Concomitant]
     Active Substance: FLUOROURACIL
     Dosage: 1656 MG, UNK
     Route: 042
     Dates: start: 20080122, end: 20080428

REACTIONS (1)
  - Acute kidney injury [Unknown]

NARRATIVE: CASE EVENT DATE: 20080428
